FAERS Safety Report 14068118 (Version 1)
Quarter: 2017Q4

REPORT INFORMATION
  Report Type: Spontaneous
  Country: US (occurrence: None)
  Receive Date: 20171010
  Receipt Date: 20171010
  Transmission Date: 20180321
  Serious: No
  Sender: FDA-Public Use
  Company Number: None

PATIENT
  Age: 78 Year
  Sex: Female
  Weight: 86.18 kg

DRUGS (6)
  1. SMZ-TMP DS TAB [Suspect]
     Active Substance: SULFAMETHOXAZOLE\TRIMETHOPRIM
     Indication: PRODUCT USED FOR UNKNOWN INDICATION
     Route: 048
     Dates: start: 20170514, end: 20170514
  2. CARVEDILOL. [Concomitant]
     Active Substance: CARVEDILOL
  3. GLIPIZIDE. [Concomitant]
     Active Substance: GLIPIZIDE
  4. ENALAPRIL [Concomitant]
     Active Substance: ENALAPRIL
  5. ONE TOUCH ULTRA TEST STRIPS [Concomitant]
  6. AMLODIPINE [Concomitant]
     Active Substance: AMLODIPINE BESYLATE

REACTIONS (4)
  - Malaise [None]
  - Dysstasia [None]
  - Hallucination [None]
  - Diarrhoea [None]

NARRATIVE: CASE EVENT DATE: 20170514
